FAERS Safety Report 8866178 (Version 1)
Quarter: 2012Q4

REPORT INFORMATION
  Report Type: 
  Country: CA (occurrence: CA)
  Receive Date: 20121025
  Receipt Date: 20121025
  Transmission Date: 20130627
  Serious: Yes (Other)
  Sender: FDA-Public Use
  Company Number: PHHY2006CA009948

PATIENT
  Age: 79 Year
  Sex: Female
  Weight: 50.9 kg

DRUGS (2)
  1. ZOMETA [Suspect]
     Indication: BREAST CANCER
     Dosage: 4 mg, every 4 weeks
     Route: 042
     Dates: start: 20060430
  2. MORPHINE [Concomitant]

REACTIONS (10)
  - Bronchitis [Unknown]
  - Chest discomfort [Unknown]
  - Dyspnoea [Unknown]
  - Palpitations [Unknown]
  - Neck pain [Unknown]
  - Tenderness [Unknown]
  - Blood creatinine increased [Unknown]
  - Glomerular filtration rate decreased [Unknown]
  - Chest pain [Recovered/Resolved]
  - Nausea [Unknown]
